FAERS Safety Report 12262699 (Version 1)
Quarter: 2016Q2

REPORT INFORMATION
  Report Type: Spontaneous
  Country: US (occurrence: US)
  Receive Date: 20160413
  Receipt Date: 20160413
  Transmission Date: 20160815
  Serious: Yes (Hospitalization, Other)
  Sender: FDA-Public Use
  Company Number: US-ARBOR PHARMACEUTICALS, LLC-US-2016ARB000272

PATIENT
  Age: 51 Year
  Sex: Male

DRUGS (1)
  1. AMPHETAMINE SULFATE [Suspect]
     Active Substance: AMPHETAMINE SULFATE
     Indication: PRODUCT USED FOR UNKNOWN INDICATION
     Dosage: 25-30 GRAMS PER WEEK

REACTIONS (8)
  - Dyspnoea [Unknown]
  - Cardiac failure [Unknown]
  - Orthopnoea [Unknown]
  - Congestive cardiomyopathy [Unknown]
  - Drug abuse [Not Recovered/Not Resolved]
  - Tachycardia [Unknown]
  - Hypoxia [Unknown]
  - Exercise tolerance decreased [Unknown]
